FAERS Safety Report 10142829 (Version 1)
Quarter: 2014Q2

REPORT INFORMATION
  Report Type: Spontaneous
  Country: IT (occurrence: IT)
  Receive Date: 20140430
  Receipt Date: 20140430
  Transmission Date: 20141212
  Serious: Yes (Hospitalization)
  Sender: FDA-Public Use
  Company Number: IT-ROCHE-1390423

PATIENT
  Age: 88 Year
  Sex: Male

DRUGS (10)
  1. ROCEFIN [Suspect]
     Indication: PRODUCT USED FOR UNKNOWN INDICATION
     Route: 030
  2. OLANZAPINE [Concomitant]
     Route: 048
  3. CARDIOASPIRIN [Concomitant]
     Route: 048
  4. EBIXA [Concomitant]
  5. PANTORC [Concomitant]
     Route: 048
  6. UNOPROST (ITALY) [Concomitant]
     Route: 048
  7. EFEXOR [Concomitant]
     Route: 048
  8. TRITTICO [Concomitant]
     Route: 048
  9. LASIX [Concomitant]
     Route: 048
  10. MEDROL [Concomitant]
     Route: 048

REACTIONS (2)
  - Drug hypersensitivity [Recovering/Resolving]
  - Hip fracture [Recovering/Resolving]
